FAERS Safety Report 4946925-X (Version None)
Quarter: 2006Q1

REPORT INFORMATION
  Report Type: 
  Country: None (occurrence: None)
  Receive Date: 20060317
  Receipt Date: 20060307
  Transmission Date: 20060701
  Serious: Yes (Other)
  Sender: FDA-Public Use
  Company Number: US-JNJFOC-20060302135

PATIENT
  Sex: Female
  Weight: 60.78 kg

DRUGS (5)
  1. TOPAMAX [Suspect]
     Indication: FIBROMYALGIA
     Route: 048
     Dates: start: 20060203, end: 20060212
  2. FLEXERIL [Concomitant]
  3. ASTELIN [Concomitant]
  4. ASMACORT [Concomitant]
  5. ACHIPHEX [Concomitant]

REACTIONS (2)
  - BLINDNESS TRANSIENT [None]
  - VISION BLURRED [None]
